FAERS Safety Report 15781103 (Version 1)
Quarter: 2019Q1

REPORT INFORMATION
  Report Type: Spontaneous
  Country: PT (occurrence: PT)
  Receive Date: 20190102
  Receipt Date: 20190102
  Transmission Date: 20190417
  Serious: Yes (Death, Other)
  Sender: FDA-Public Use
  Company Number: PT-ACCORD-099354

PATIENT

DRUGS (8)
  1. DICLOFENAC/MISOPROSTOL [Suspect]
     Active Substance: DICLOFENAC SODIUM\MISOPROSTOL
     Indication: RHEUMATIC DISORDER
     Dosage: 1CP 2 X AO DIA
     Route: 048
     Dates: start: 20180221
  2. ALLOPURINOL. [Suspect]
     Active Substance: ALLOPURINOL
     Indication: BLOOD URIC ACID
     Dosage: 300MG 1 X DAILY
     Route: 048
     Dates: start: 20180221
  3. DONEPEZIL/DONEPEZIL HYDROCHLORIDE [Concomitant]
  4. ACETYLSALICYLIC ACID [Concomitant]
     Active Substance: ASPIRIN
  5. MEMANTINA [Concomitant]
     Active Substance: MEMANTINE HYDROCHLORIDE
  6. HYDROCHLOROTHIAZIDE/LOSARTAN POTASSIUM [Concomitant]
  7. PRAVASTATIN. [Concomitant]
     Active Substance: PRAVASTATIN
  8. AMLODIPINE [Concomitant]
     Active Substance: AMLODIPINE BESYLATE

REACTIONS (1)
  - Thermal burn [Fatal]

NARRATIVE: CASE EVENT DATE: 20180224
